FAERS Safety Report 19696260 (Version 1)
Quarter: 2021Q3

REPORT INFORMATION
  Report Type: Spontaneous
  Country: US (occurrence: US)
  Receive Date: 20210813
  Receipt Date: 20210813
  Transmission Date: 20211014
  Serious: Yes (Other)
  Sender: FDA-Public Use
  Company Number: US-GLAXOSMITHKLINE-US2021GSK170255

PATIENT
  Sex: Male

DRUGS (8)
  1. ZANTAC [Suspect]
     Active Substance: RANITIDINE HYDROCHLORIDE
     Indication: IRRITABLE BOWEL SYNDROME
  2. ZANTAC [Suspect]
     Active Substance: RANITIDINE HYDROCHLORIDE
     Indication: IRRITABLE BOWEL SYNDROME
  3. RANITIDINE. [Suspect]
     Active Substance: RANITIDINE
     Indication: ABDOMINAL DISCOMFORT
     Dosage: 150 MG, WE,EVERY OTHER DAY
     Route: 065
     Dates: start: 199801, end: 201701
  4. RANITIDINE. [Suspect]
     Active Substance: RANITIDINE
     Indication: ABDOMINAL DISCOMFORT
     Dosage: 150 MG, WE,EVERY OTHER DAY
     Route: 065
     Dates: start: 199801, end: 201701
  5. ZANTAC [Suspect]
     Active Substance: RANITIDINE HYDROCHLORIDE
     Indication: ABDOMINAL DISCOMFORT
     Dosage: 150 MG, WE,EVERY OTHER DAY
     Route: 065
     Dates: start: 199501, end: 201701
  6. RANITIDINE. [Suspect]
     Active Substance: RANITIDINE
     Indication: IRRITABLE BOWEL SYNDROME
  7. ZANTAC [Suspect]
     Active Substance: RANITIDINE HYDROCHLORIDE
     Indication: ABDOMINAL DISCOMFORT
     Dosage: 150 MG, WE,EVERY OTHER DAY
     Route: 065
     Dates: start: 199501, end: 201701
  8. RANITIDINE. [Suspect]
     Active Substance: RANITIDINE
     Indication: IRRITABLE BOWEL SYNDROME

REACTIONS (1)
  - Prostate cancer [Unknown]
